FAERS Safety Report 19326990 (Version 1)
Quarter: 2021Q2

REPORT INFORMATION
  Report Type: Spontaneous
  Country: KR (occurrence: KR)
  Receive Date: 20210528
  Receipt Date: 20210528
  Transmission Date: 20210717
  Serious: Yes (Other)
  Sender: FDA-Public Use
  Company Number: KR-LUPIN PHARMACEUTICALS INC.-2021-07899

PATIENT
  Age: 49 Year
  Sex: Male

DRUGS (4)
  1. ISONIAZID. [Concomitant]
     Active Substance: ISONIAZID
     Indication: ANTIBIOTIC PROPHYLAXIS
     Dosage: 300 MILLIGRAM
     Route: 065
  2. PYRIDOXIN [Concomitant]
     Active Substance: PYRIDOXINE
     Indication: ANTIBIOTIC PROPHYLAXIS
     Dosage: 50 MILLIGRAM, QD
     Route: 065
  3. SORAFENIB [Suspect]
     Active Substance: SORAFENIB
     Indication: ACUTE MYELOID LEUKAEMIA RECURRENT
     Dosage: 400 MILLIGRAM
     Route: 065
  4. AZACITIDINE. [Suspect]
     Active Substance: AZACITIDINE
     Indication: ACUTE MYELOID LEUKAEMIA RECURRENT
     Dosage: 135 MILLIGRAM
     Route: 065

REACTIONS (1)
  - Hidradenitis [Recovered/Resolved with Sequelae]
